FAERS Safety Report 8557835-3 (Version None)
Quarter: 2012Q3

REPORT INFORMATION
  Report Type: 
  Country: None (occurrence: None)
  Receive Date: 20120801
  Receipt Date: 20120724
  Transmission Date: 20120928
  Serious: Yes (Other)
  Sender: FDA-Public Use
  Company Number: CA-GLAXOSMITHKLINE-A0986423A

PATIENT
  Sex: Male

DRUGS (1)
  1. VERDESO [Suspect]
     Indication: ECZEMA
     Route: 061

REACTIONS (2)
  - SKIN DISCOLOURATION [None]
  - APPLICATION SITE DISCOLOURATION [None]
